FAERS Safety Report 16565344 (Version 1)
Quarter: 2019Q3

REPORT INFORMATION
  Report Type: Spontaneous
  Country: US (occurrence: US)
  Receive Date: 20190531
  Receipt Date: 20190531
  Transmission Date: 20191004
  Serious: No
  Sender: FDA-Public Use
  Company Number: None

PATIENT
  Age: 26 Year
  Sex: Male

DRUGS (1)
  1. BUPRENORPHINE-NALOXONE 8MG-2MG TAB [Suspect]
     Active Substance: BUPRENORPHINE\NALOXONE
     Indication: DRUG USE DISORDER
     Dates: start: 20190521

REACTIONS (1)
  - Tongue blistering [None]

NARRATIVE: CASE EVENT DATE: 20190528
